FAERS Safety Report 20751718 (Version 6)
Quarter: 2023Q1

REPORT INFORMATION
  Report Type: Report from Study
  Country: MX (occurrence: MX)
  Receive Date: 20220426
  Receipt Date: 20230209
  Transmission Date: 20230418
  Serious: Yes (Hospitalization, Other)
  Sender: FDA-Public Use
  Company Number: MX-NOVARTISPH-NVSC2022MX089555

PATIENT
  Sex: Female

DRUGS (2)
  1. TASIGNA [Suspect]
     Active Substance: NILOTINIB
     Indication: Chronic myeloid leukaemia
     Dosage: 400 MG, Q12H
     Route: 048
  2. SALINE [Concomitant]
     Active Substance: SODIUM CHLORIDE
     Indication: Product used for unknown indication
     Dosage: UNK
     Route: 065

REACTIONS (34)
  - Choking [Unknown]
  - Mood altered [Unknown]
  - Oropharyngeal pain [Unknown]
  - Mouth haemorrhage [Unknown]
  - COVID-19 [Unknown]
  - Productive cough [Unknown]
  - Cough [Unknown]
  - Benign lung neoplasm [Unknown]
  - Pleural effusion [Unknown]
  - Dyspnoea [Unknown]
  - Anger [Unknown]
  - Illness [Unknown]
  - Aversion [Unknown]
  - Somnolence [Unknown]
  - Decreased appetite [Unknown]
  - Laziness [Unknown]
  - Feeling abnormal [Unknown]
  - Abdominal pain upper [Unknown]
  - Malaise [Unknown]
  - Nausea [Unknown]
  - Vomiting [Unknown]
  - Pain [Unknown]
  - Diarrhoea [Unknown]
  - Headache [Unknown]
  - Fatigue [Unknown]
  - Hypertension [Unknown]
  - Cytogenetic analysis abnormal [Unknown]
  - Decreased immune responsiveness [Unknown]
  - Swelling [Unknown]
  - Dizziness [Unknown]
  - Blood pressure increased [Unknown]
  - Dehydration [Unknown]
  - Blood pressure decreased [Unknown]
  - Depression [Unknown]
